FAERS Safety Report 7384568-1 (Version None)
Quarter: 2011Q1

REPORT INFORMATION
  Report Type: 
  Country: None (occurrence: None)
  Receive Date: 20110330
  Receipt Date: 20110330
  Transmission Date: 20110831
  Serious: Yes (Other)
  Sender: FDA-Public Use
  Company Number: IT-TEVA-271940ISR

PATIENT
  Age: 22 Year
  Sex: Male

DRUGS (9)
  1. METHOTREXATE [Suspect]
  2. PREDNISONE [Suspect]
  3. AZATHIOPRINE [Suspect]
  4. INFLIXIMAB [Suspect]
  5. INTERFERON ALFA [Suspect]
     Dosage: 3 TO 4.5MU
  6. MYCOPHENOLATE MOFETIL [Suspect]
  7. PREDNISONE [Suspect]
     Dosage: } 20 MG
  8. CHLORAMBUCIL [Suspect]
  9. CYCLOSPORINE [Suspect]

REACTIONS (10)
  - GLAUCOMA [None]
  - OSTEOPOROSIS [None]
  - CATARACT [None]
  - TRANSAMINASES INCREASED [None]
  - SUICIDE ATTEMPT [None]
  - BEHCET'S SYNDROME [None]
  - PULMONARY TUBERCULOSIS [None]
  - LEGIONELLA INFECTION [None]
  - DEPRESSION [None]
  - LEUKOPENIA [None]
